FAERS Safety Report 13534170 (Version 3)
Quarter: 2017Q2

REPORT INFORMATION
  Report Type: Spontaneous
  Country: DE (occurrence: DE)
  Receive Date: 20170510
  Receipt Date: 20170620
  Transmission Date: 20170830
  Serious: Yes (Other)
  Sender: FDA-Public Use
  Company Number: DE-MEDA-2017050047

PATIENT
  Age: 79 Year
  Sex: Female

DRUGS (3)
  1. COLIFOAM (BATCH: 60761E) [Suspect]
     Active Substance: HYDROCORTISONE ACETATE
     Indication: GASTROINTESTINAL DISORDER
     Route: 054
     Dates: start: 2008
  2. CORTISON [Suspect]
     Active Substance: CORTISONE ACETATE
     Indication: GASTROINTESTINAL HAEMORRHAGE
     Route: 054
     Dates: start: 2008
  3. LOSARTAN. [Concomitant]
     Active Substance: LOSARTAN
     Indication: HYPERTENSION

REACTIONS (3)
  - Product container issue [Unknown]
  - Skin haemorrhage [Not Recovered/Not Resolved]
  - Weight increased [Not Recovered/Not Resolved]

NARRATIVE: CASE EVENT DATE: 201701
